FAERS Safety Report 16799130 (Version 4)
Quarter: 2019Q4

REPORT INFORMATION
  Report Type: Spontaneous
  Country: US (occurrence: US)
  Receive Date: 20190912
  Receipt Date: 20191105
  Transmission Date: 20200122
  Serious: No
  Sender: FDA-Public Use
  Company Number: US-PFIZER INC-2019171617

PATIENT
  Age: 67 Year
  Sex: Female
  Weight: 66 kg

DRUGS (3)
  1. BUSPAR [Concomitant]
     Active Substance: BUSPIRONE HYDROCHLORIDE
     Dosage: UNK
  2. LYRICA [Suspect]
     Active Substance: PREGABALIN
     Indication: FIBROMYALGIA
  3. LYRICA [Suspect]
     Active Substance: PREGABALIN
     Indication: PAIN
     Dosage: 150 MG, DAILY (TWICE A DAY; 50MG IN THE MORNING 100MG AT NIGHT )
     Route: 048

REACTIONS (7)
  - Insomnia [Unknown]
  - Dyspnoea [Unknown]
  - Withdrawal syndrome [Not Recovered/Not Resolved]
  - Gout [Unknown]
  - Malaise [Unknown]
  - Urticaria [Unknown]
  - Palpitations [Unknown]

NARRATIVE: CASE EVENT DATE: 201909
